FAERS Safety Report 24970344 (Version 1)
Quarter: 2025Q1

REPORT INFORMATION
  Report Type: Spontaneous
  Country: US (occurrence: US)
  Receive Date: 20250214
  Receipt Date: 20250214
  Transmission Date: 20250408
  Serious: Yes (Other)
  Sender: MYLAN
  Company Number: US-MYLANLABS-2025M1012809

PATIENT
  Age: 35 Year
  Sex: Male

DRUGS (4)
  1. POTASSIUM [Suspect]
     Active Substance: POTASSIUM
     Indication: Gitelman^s syndrome
     Dosage: 240 MILLIEQUIVALENT, QD
     Route: 065
  2. POTASSIUM [Suspect]
     Active Substance: POTASSIUM
     Indication: Hypokalaemia
  3. MAGNESIUM [Suspect]
     Active Substance: MAGNESIUM
     Indication: Gitelman^s syndrome
     Dosage: 800 MILLIGRAM, QD
     Route: 065
  4. MAGNESIUM [Suspect]
     Active Substance: MAGNESIUM
     Indication: Hypomagnesaemia

REACTIONS (1)
  - Drug ineffective [Unknown]
